FAERS Safety Report 14450717 (Version 3)
Quarter: 2018Q4

REPORT INFORMATION
  Report Type: Spontaneous
  Country: IE (occurrence: IE)
  Receive Date: 20180129
  Receipt Date: 20181012
  Transmission Date: 20190204
  Serious: Yes (Other)
  Sender: FDA-Public Use
  Company Number: IE-CPL-000160

PATIENT
  Age: 68 Year
  Sex: Female

DRUGS (2)
  1. ELTROXIN [Concomitant]
     Active Substance: LEVOTHYROXINE
     Indication: HYPOTHYROIDISM
     Dosage: DOSE 1 (UNIT UNKNOWN) ?75 MCG MONDAY TO FRIDAY AND 100 MCG SATURDAY AND SUNDAY
     Route: 048
     Dates: start: 20070101
  2. DONEPEZIL. [Suspect]
     Active Substance: DONEPEZIL
     Indication: DEMENTIA
     Dosage: 10 MG, 1X/DAY
     Route: 048
     Dates: start: 20170101

REACTIONS (1)
  - Bundle branch block left [Not Recovered/Not Resolved]

NARRATIVE: CASE EVENT DATE: 20171214
